FAERS Safety Report 8337093-5 (Version None)
Quarter: 2012Q2

REPORT INFORMATION
  Report Type: 
  Country: None (occurrence: None)
  Receive Date: 20120501
  Receipt Date: 20120426
  Transmission Date: 20120825
  Serious: Yes (Congenital Anomaly, Other)
  Sender: FDA-Public Use
  Company Number: GER/GER/12/0024102

PATIENT
  Sex: Female
  Weight: 3.56 kg

DRUGS (2)
  1. SERTRALINE HYDROCHLORIDE [Suspect]
     Indication: PRODUCT USED FOR UNKNOWN INDICATION
     Dosage: 75 MG, 75MG/DAY, TRANSPLACENTAL
     Route: 064
     Dates: start: 20091217, end: 20101005
  2. TRIMIPRAMINE MALEATE [Suspect]
     Indication: PRODUCT USED FOR UNKNOWN INDICATION
     Dosage: 75 MG, 75MG/DAY, TRANSPLACENTAL
     Route: 064
     Dates: start: 20091217, end: 20101005

REACTIONS (6)
  - AMNIOCENTESIS ABNORMAL [None]
  - MATERNAL DRUGS AFFECTING FOETUS [None]
  - RESPIRATORY DISTRESS [None]
  - ATRIAL SEPTAL DEFECT [None]
  - POSTMATURE BABY [None]
  - CONGENITAL TRICUSPID VALVE INCOMPETENCE [None]
